FAERS Safety Report 5658994-2 (Version None)
Quarter: 2008Q1

REPORT INFORMATION
  Report Type: 
  Country: None (occurrence: None)
  Receive Date: 20080310
  Receipt Date: 20070518
  Transmission Date: 20080703
  Serious: No
  Sender: FDA-Public Use
  Company Number: US-BAYER-200711607BCC

PATIENT
  Age: 69 Year
  Sex: Female
  Weight: 73 kg

DRUGS (7)
  1. ALEVE [Suspect]
     Indication: HEADACHE
     Dosage: TOTAL DAILY DOSE: 440 MG  UNIT DOSE: 220 MG
     Route: 048
     Dates: start: 20070511
  2. FOSAMAX [Concomitant]
  3. SYNTHROID [Concomitant]
  4. IMIPRAMINE [Concomitant]
  5. CALCIUM 600 WITH D [Concomitant]
  6. VITAMIN K INJECTIONS [Concomitant]
  7. COLACE [Concomitant]

REACTIONS (1)
  - PRURITUS GENERALISED [None]
